FAERS Safety Report 5036164-9 (Version None)
Quarter: 2006Q2

REPORT INFORMATION
  Report Type: 
  Country: None (occurrence: None)
  Receive Date: 20060531
  Receipt Date: 20060303
  Transmission Date: 20061013
  Serious: No
  Sender: FDA-Public Use
  Company Number: PHEH2006US02930

PATIENT
  Age: 29 Year
  Sex: Male

DRUGS (1)
  1. EXJADE [Suspect]
     Indication: BLOOD IRON INCREASED
     Dosage: 1000 MG QD UNK
     Route: 065
     Dates: start: 20060210, end: 20060223

REACTIONS (1)
  - SOMNOLENCE [None]
